FAERS Safety Report 6439504-9 (Version None)
Quarter: 2009Q4

REPORT INFORMATION
  Report Type: 
  Country: None (occurrence: None)
  Receive Date: 20091113
  Receipt Date: 20091112
  Transmission Date: 20100525
  Serious: Yes (Other)
  Sender: FDA-Public Use
  Company Number: A0801776B

PATIENT
  Sex: Male
  Weight: 105 kg

DRUGS (4)
  1. ELTROMBOPAG [Suspect]
     Indication: THROMBOCYTOPENIA
     Dosage: 75MG PER DAY
     Route: 048
     Dates: start: 20090428, end: 20091013
  2. ELTROMBOPAG [Suspect]
     Route: 048
     Dates: start: 20090312, end: 20090427
  3. PEG-INTRON [Suspect]
     Route: 058
     Dates: start: 20090428, end: 20091006
  4. REBETOL [Suspect]
     Route: 048
     Dates: start: 20090429, end: 20091013

REACTIONS (2)
  - CATARACT [None]
  - VISUAL ACUITY REDUCED [None]
